FAERS Safety Report 17134437 (Version 1)
Quarter: 2019Q4

REPORT INFORMATION
  Report Type: Spontaneous
  Country: FR (occurrence: FR)
  Receive Date: 20191210
  Receipt Date: 20191210
  Transmission Date: 20200122
  Serious: Yes (Hospitalization)
  Sender: FDA-Public Use
  Company Number: FR-PFIZER INC-2019524178

PATIENT
  Age: 44 Year
  Sex: Male

DRUGS (7)
  1. IBUPROFEN. [Suspect]
     Active Substance: IBUPROFEN
     Indication: PAIN
     Dosage: 400 MG, UNK
     Route: 048
  2. FLUIDABAK [Concomitant]
     Active Substance: POVIDONE
     Dosage: UNK
     Route: 047
  3. PAROXETINE. [Concomitant]
     Active Substance: PAROXETINE
     Dosage: 20 MG, 1X/DAY
     Route: 048
  4. PARACETAMOL [Concomitant]
     Active Substance: ACETAMINOPHEN
     Indication: PAIN
     Dosage: UNK
     Route: 048
  5. CIALIS [Concomitant]
     Active Substance: TADALAFIL
     Dosage: UNK
     Route: 048
  6. CLOPIXOL ACTION PROLONGEE [Concomitant]
     Active Substance: ZUCLOPENTHIXOL ACETATE
     Dosage: 100 MG, EVERY 3 WEEKS
     Route: 030
  7. DEPAKINE [VALPROATE SODIUM] [Concomitant]
     Active Substance: VALPROATE SODIUM
     Indication: EPILEPSY
     Dosage: 3 DF, 1X/DAY
     Route: 048

REACTIONS (1)
  - Pharyngeal abscess [Recovering/Resolving]

NARRATIVE: CASE EVENT DATE: 20191010
